FAERS Safety Report 5987013-3 (Version None)
Quarter: 2008Q4

REPORT INFORMATION
  Report Type: 
  Country: None (occurrence: None)
  Receive Date: 20081209
  Receipt Date: 20081204
  Transmission Date: 20090506
  Serious: Yes (Death, Hospitalization)
  Sender: FDA-Public Use
  Company Number: B0545827A

PATIENT
  Age: 59 Year
  Sex: Female
  Weight: 96 kg

DRUGS (2)
  1. LAPATINIB [Suspect]
     Indication: BREAST CANCER METASTATIC
     Dosage: 1250MG PER DAY
     Route: 048
     Dates: start: 20080521, end: 20081104
  2. CAPECITABINE [Suspect]
     Indication: BREAST CANCER METASTATIC
     Dosage: 3600MG PER DAY
     Route: 048
     Dates: start: 20080521, end: 20081022

REACTIONS (11)
  - CARDIOPULMONARY FAILURE [None]
  - DIALYSIS [None]
  - DIARRHOEA [None]
  - DYSPNOEA [None]
  - GENERAL PHYSICAL HEALTH DETERIORATION [None]
  - HYPOCALCAEMIA [None]
  - OEDEMA PERIPHERAL [None]
  - PLATELET COUNT DECREASED [None]
  - PULMONARY EMBOLISM [None]
  - RENAL IMPAIRMENT [None]
  - TREATMENT NONCOMPLIANCE [None]
